FAERS Safety Report 10860815 (Version 1)
Quarter: 2015Q1

REPORT INFORMATION
  Report Type: Spontaneous
  Country: US (occurrence: US)
  Receive Date: 20150224
  Receipt Date: 20150224
  Transmission Date: 20150721
  Serious: No
  Sender: FDA-Public Use
  Company Number: US-GLAXOSMITHKLINE-US2015GSK008514

PATIENT
  Sex: Female
  Weight: 86.17 kg

DRUGS (9)
  1. VOTRIENT [Suspect]
     Active Substance: PAZOPANIB HYDROCHLORIDE
     Indication: MALIGNANT NEOPLASM OF RENAL PELVIS
  2. ECOTRIN [Concomitant]
     Active Substance: ASPIRIN
  3. ASPIRIN. [Concomitant]
     Active Substance: ASPIRIN
  4. MAGNESIUM [Concomitant]
     Active Substance: MAGNESIUM
  5. VOTRIENT [Suspect]
     Active Substance: PAZOPANIB HYDROCHLORIDE
     Indication: RENAL CANCER
     Dosage: 800 MG, QD
     Route: 048
     Dates: start: 20141212
  6. HUMALOG [Concomitant]
     Active Substance: INSULIN LISPRO
  7. METFORMIN [Concomitant]
     Active Substance: METFORMIN HYDROCHLORIDE
  8. LANTUS [Concomitant]
     Active Substance: INSULIN GLARGINE
  9. VITAMIN D [Concomitant]
     Active Substance: CHOLECALCIFEROL

REACTIONS (1)
  - Back pain [Unknown]
